FAERS Safety Report 8016556-6 (Version None)
Quarter: 2011Q4

REPORT INFORMATION
  Report Type: 
  Country: None (occurrence: None)
  Receive Date: 20111230
  Receipt Date: 20111227
  Transmission Date: 20120403
  Serious: No
  Sender: FDA-Public Use
  Company Number: US-BAYER-2011-124511

PATIENT
  Age: 43 Year
  Sex: Male
  Weight: 136 kg

DRUGS (2)
  1. ALEVE (CAPLET) [Suspect]
     Indication: ANALGESIC THERAPY
     Dosage: UNK
     Route: 048
     Dates: start: 20111227
  2. OVER THE COUNTER PAIN RELIEVERS [Concomitant]

REACTIONS (1)
  - NO ADVERSE EVENT [None]
